FAERS Safety Report 12143233 (Version 1)
Quarter: 2016Q1

REPORT INFORMATION
  Report Type: Other
  Country: PT (occurrence: PT)
  Receive Date: 20160304
  Receipt Date: 20160304
  Transmission Date: 20160526
  Serious: Yes (Other)
  Sender: FDA-Public Use
  Company Number: PT-LUPIN PHARMACEUTICALS INC.-2015-04444

PATIENT
  Age: 75 Year
  Sex: Female

DRUGS (10)
  1. RIFAMPICIN [Suspect]
     Active Substance: RIFAMPIN
     Dosage: 600 MG
     Route: 065
  2. ALLOPURINOL. [Concomitant]
     Active Substance: ALLOPURINOL
     Indication: LYMPH NODE TUBERCULOSIS
     Dosage: 100 MG
     Route: 065
  3. PIRIDOXIN [Concomitant]
     Indication: LYMPH NODE TUBERCULOSIS
     Dosage: 150 MG
     Route: 065
  4. ETHAMBUTOL [Suspect]
     Active Substance: ETHAMBUTOL HYDROCHLORIDE
     Indication: LYMPH NODE TUBERCULOSIS
     Dosage: 800 MG
     Route: 065
  5. RIFAMPICIN [Suspect]
     Active Substance: RIFAMPIN
     Indication: LYMPH NODE TUBERCULOSIS
     Dosage: 600 MG
     Route: 065
  6. ISONIAZID. [Suspect]
     Active Substance: ISONIAZID
     Dosage: 300 MG
     Route: 065
  7. PYRAZINAMIDE. [Suspect]
     Active Substance: PYRAZINAMIDE
     Dosage: 1500 MG
     Route: 065
  8. PYRAZINAMIDE. [Suspect]
     Active Substance: PYRAZINAMIDE
     Indication: LYMPH NODE TUBERCULOSIS
     Dosage: 1500 MG
     Route: 065
  9. ETHAMBUTOL [Suspect]
     Active Substance: ETHAMBUTOL HYDROCHLORIDE
     Dosage: 800 MG
     Route: 065
  10. ISONIAZID. [Suspect]
     Active Substance: ISONIAZID
     Indication: LYMPH NODE TUBERCULOSIS
     Dosage: 300 MG
     Route: 065

REACTIONS (1)
  - Hepatotoxicity [Recovered/Resolved]
